FAERS Safety Report 5567175-2 (Version None)
Quarter: 2007Q4

REPORT INFORMATION
  Report Type: 
  Country: None (occurrence: None)
  Receive Date: 20071219
  Receipt Date: 20071213
  Transmission Date: 20080405
  Serious: Yes (Hospitalization)
  Sender: FDA-Public Use
  Company Number: US-ELI_LILLY_AND_COMPANY-US200712003025

PATIENT
  Sex: Male

DRUGS (4)
  1. HUMULIN 70/30 [Suspect]
  2. GLUCOPHAGE [Concomitant]
  3. LANTUS [Concomitant]
  4. ASPIRIN [Concomitant]

REACTIONS (1)
  - CARDIAC DISORDER [None]
